FAERS Safety Report 12051302 (Version 7)
Quarter: 2019Q3

REPORT INFORMATION
  Report Type: Spontaneous
  Country: US (occurrence: US)
  Receive Date: 20160209
  Receipt Date: 20190703
  Transmission Date: 20191004
  Serious: No
  Sender: FDA-Public Use
  Company Number: US-PFIZER INC-2016068198

PATIENT
  Age: 40 Year
  Sex: Male
  Weight: 117.9 kg

DRUGS (3)
  1. VIAGRA [Suspect]
     Active Substance: SILDENAFIL CITRATE
     Indication: ERECTILE DYSFUNCTION
     Dosage: 25 MG TO 100 MG, AS NEEDED (ONE-FOURTH TO ONE TABLET)
     Route: 048
  2. VIAGRA [Suspect]
     Active Substance: SILDENAFIL CITRATE
     Dosage: 100 MG, UNK
  3. VIAGRA [Suspect]
     Active Substance: SILDENAFIL CITRATE
     Dosage: 12.5 MG TO 50 MG, AS NEEDED (ONE-FOURTH TO ONE TABLET)
     Route: 048

REACTIONS (8)
  - Product use issue [Unknown]
  - Off label use [Unknown]
  - Drug ineffective [Not Recovered/Not Resolved]
  - Rash [Unknown]
  - Nasopharyngitis [Unknown]
  - Intentional product use issue [Unknown]
  - Malaise [Unknown]
  - Intentional overdose [Unknown]

NARRATIVE: CASE EVENT DATE: 2016
